FAERS Safety Report 7414823-8 (Version None)
Quarter: 2011Q2

REPORT INFORMATION
  Report Type: 
  Country: None (occurrence: None)
  Receive Date: 20110414
  Receipt Date: 20110407
  Transmission Date: 20111010
  Serious: Yes (Other)
  Sender: FDA-Public Use
  Company Number: BR-B.I. PHARMACEUTICALS,INC./RIDGEFIELD-2011-BR-00333BR

PATIENT
  Sex: Female

DRUGS (3)
  1. SIFROL [Suspect]
     Indication: PARKINSON'S DISEASE
     Route: 048
     Dates: start: 20110301, end: 20110301
  2. SIFROL ER [Suspect]
     Indication: PARKINSON'S DISEASE
     Route: 048
  3. SIFROL [Suspect]
     Route: 048

REACTIONS (4)
  - TREMOR [None]
  - BLOOD PRESSURE INCREASED [None]
  - DIZZINESS [None]
  - VOMITING [None]
